FAERS Safety Report 4844120-6 (Version None)
Quarter: 2005Q4

REPORT INFORMATION
  Report Type: 
  Country: None (occurrence: None)
  Receive Date: 20051202
  Receipt Date: 20051004
  Transmission Date: 20060501
  Serious: Yes (Hospitalization, Other)
  Sender: FDA-Public Use
  Company Number: US-MERCK-0510USA03313

PATIENT
  Age: 72 Year
  Sex: Female
  Weight: 64 kg

DRUGS (8)
  1. VIOXX [Suspect]
     Indication: ARTHRITIS
     Route: 048
     Dates: end: 19990101
  2. WARFARIN [Concomitant]
     Route: 065
  3. LASIX [Concomitant]
     Route: 065
  4. VERAPAMIL [Concomitant]
     Route: 065
  5. DIGOXIN [Concomitant]
     Route: 065
  6. LIPITOR [Concomitant]
     Route: 065
  7. LISINOPRIL [Concomitant]
     Route: 065
  8. SYNTHROID [Concomitant]
     Route: 065

REACTIONS (6)
  - ADVERSE EVENT [None]
  - ARTHROPATHY [None]
  - CARDIAC DISORDER [None]
  - CARDIAC FAILURE [None]
  - INFLUENZA [None]
  - MYOCARDIAL INFARCTION [None]
